FAERS Safety Report 8212386-0 (Version None)
Quarter: 2012Q1

REPORT INFORMATION
  Report Type: 
  Country: None (occurrence: None)
  Receive Date: 20120315
  Receipt Date: 20120307
  Transmission Date: 20120608
  Serious: Yes (Hospitalization)
  Sender: FDA-Public Use
  Company Number: ZA-MEDIMMUNE-MEDI-0015147

PATIENT
  Age: 4 Month

DRUGS (1)
  1. SYNAGIS [Suspect]
     Dates: start: 20120229, end: 20120229

REACTIONS (4)
  - RESPIRATORY SYNCYTIAL VIRUS TEST POSITIVE [None]
  - APNOEA [None]
  - BRADYCARDIA [None]
  - HAEMOGLOBIN DECREASED [None]
